FAERS Safety Report 25575863 (Version 1)
Quarter: 2025Q3

REPORT INFORMATION
  Report Type: Report from Study
  Country: IN (occurrence: IN)
  Receive Date: 20250718
  Receipt Date: 20250718
  Transmission Date: 20251020
  Serious: Yes (Other)
  Sender: NOVARTIS
  Company Number: IN-002147023-NVSC2024IN135156

PATIENT
  Sex: Female
  Weight: 38.2 kg

DRUGS (2)
  1. RIBOCICLIB [Suspect]
     Active Substance: RIBOCICLIB
     Indication: Breast cancer metastatic
     Dosage: 600 MG, QD
     Route: 048
     Dates: start: 20240307
  2. RIBOCICLIB [Suspect]
     Active Substance: RIBOCICLIB
     Dosage: 400 MG, QD
     Route: 048

REACTIONS (10)
  - Interstitial lung disease [Unknown]
  - Metastases to lymph nodes [Unknown]
  - Metastases to liver [Unknown]
  - Blood pressure decreased [Unknown]
  - Heart rate increased [Unknown]
  - Pulmonary mass [Unknown]
  - Pleural effusion [Unknown]
  - Scleral disorder [Unknown]
  - Eastern Cooperative Oncology Group performance status abnormal [Unknown]
  - Dyspnoea [Unknown]
